FAERS Safety Report 9283121 (Version 1)
Quarter: 2013Q2

REPORT INFORMATION
  Report Type: Spontaneous
  Country: US (occurrence: US)
  Receive Date: 20130510
  Receipt Date: 20130510
  Transmission Date: 20140414
  Serious: No
  Sender: FDA-Public Use
  Company Number: US-GLAXOSMITHKLINE-A0981296A

PATIENT
  Age: 55 Year
  Sex: Female
  Weight: 73.6 kg

DRUGS (4)
  1. TYKERB [Suspect]
     Indication: BREAST CANCER
     Route: 048
     Dates: start: 20120524
  2. HERCEPTIN [Concomitant]
     Route: 042
     Dates: start: 20120524
  3. FEMARA [Concomitant]
  4. CLINDAMYCIN [Concomitant]

REACTIONS (3)
  - Rash maculo-papular [Not Recovered/Not Resolved]
  - Acne [Unknown]
  - Rash pustular [Unknown]
